FAERS Safety Report 25700818 (Version 2)
Quarter: 2025Q4

REPORT INFORMATION
  Report Type: Spontaneous
  Country: US (occurrence: US)
  Receive Date: 20250819
  Receipt Date: 20251009
  Transmission Date: 20260119
  Serious: No
  Sender: SANOFI AVENTIS
  Company Number: US-SA-2025SA245676

PATIENT
  Age: 77 Year
  Sex: Male

DRUGS (1)
  1. DUPIXENT [Suspect]
     Active Substance: DUPILUMAB
     Indication: Nasal polyps
     Dosage: 300 MG, QOW
     Route: 058
     Dates: start: 202506

REACTIONS (5)
  - Eructation [Unknown]
  - Dyspepsia [Unknown]
  - Cough [Unknown]
  - Mouth swelling [Recovered/Resolved]
  - Dental discomfort [Recovered/Resolved]

NARRATIVE: CASE EVENT DATE: 20250101
